FAERS Safety Report 4956507-1 (Version None)
Quarter: 2006Q1

REPORT INFORMATION
  Report Type: 
  Country: None (occurrence: None)
  Receive Date: 20060322
  Receipt Date: 20060308
  Transmission Date: 20060701
  Serious: Yes (Other)
  Sender: FDA-Public Use
  Company Number: US017056

PATIENT
  Age: 67 Year
  Sex: Male
  Weight: 88.4514 kg

DRUGS (9)
  1. PROVIGIL [Suspect]
     Indication: NARCOLEPSY
     Dosage: 200 MG QD ORAL
     Route: 048
  2. PROVIGIL [Suspect]
     Indication: SLEEP APNOEA SYNDROME
     Dosage: 200 MG QD ORAL
     Route: 048
  3. NARDIL [Concomitant]
  4. LOPRESSOR [Concomitant]
  5. ZOLOR ^MERCK^ [Concomitant]
  6. FUROSEMIDE [Concomitant]
  7. K-DUR 10 [Concomitant]
  8. ASPIRIN [Concomitant]
  9. LORAZEPAM [Concomitant]

REACTIONS (2)
  - ERUCTATION [None]
  - PETIT MAL EPILEPSY [None]
